FAERS Safety Report 8356085-3 (Version None)
Quarter: 2012Q2

REPORT INFORMATION
  Report Type: 
  Country: None (occurrence: None)
  Receive Date: 20120514
  Receipt Date: 20120508
  Transmission Date: 20120825
  Serious: Yes (Hospitalization)
  Sender: FDA-Public Use
  Company Number: US-BAYER-2012-046460

PATIENT
  Age: 25 Year
  Sex: Female

DRUGS (6)
  1. DROSPIRENONE AND ETHINYL ESTRADIOL [Suspect]
  2. NSAID'S [Concomitant]
  3. ORAL CONTRACEPTIVE NOS [Concomitant]
  4. YAZ [Suspect]
  5. BEYAZ [Suspect]
  6. MINOCYCLINE HCL [Concomitant]
     Dosage: UNK
     Route: 048
     Dates: start: 20100201

REACTIONS (1)
  - PULMONARY EMBOLISM [None]
